FAERS Safety Report 9090015 (Version 1)
Quarter: 2013Q1

REPORT INFORMATION
  Report Type: Report from Study
  Country: US (occurrence: US)
  Receive Date: 20130201
  Receipt Date: 20130201
  Transmission Date: 20140127
  Serious: No
  Sender: FDA-Public Use
  Company Number: US-ABBOTT-13P-163-1029996-00

PATIENT
  Age: 39 Year
  Sex: Female

DRUGS (6)
  1. HUMIRA [Suspect]
     Indication: CROHN^S DISEASE
     Dates: start: 20121119
  2. HUMIRA [Suspect]
     Dates: start: 20121203
  3. ZOLOFT [Concomitant]
     Indication: SOCIAL PHOBIA
  4. AMBIEN [Concomitant]
     Indication: INSOMNIA
  5. XANAX [Concomitant]
     Indication: ANXIETY
  6. LOMOTIL [Concomitant]
     Indication: DIARRHOEA

REACTIONS (1)
  - Diarrhoea [Recovering/Resolving]
